FAERS Safety Report 21435028 (Version 1)
Quarter: 2022Q4

REPORT INFORMATION
  Report Type: Report from Study
  Country: CA (occurrence: CA)
  Receive Date: 20221010
  Receipt Date: 20221010
  Transmission Date: 20230113
  Serious: Yes (Hospitalization)
  Sender: FDA-Public Use
  Company Number: CA-NOVARTISPH-NVSC2020CA032854

PATIENT
  Age: 87 Year
  Sex: Female

DRUGS (2)
  1. ERELZI [Suspect]
     Active Substance: ETANERCEPT-SZZS
     Indication: Ankylosing spondylitis
     Dosage: 50 MG, QW
     Route: 058
     Dates: start: 20200121
  2. ERELZI [Suspect]
     Active Substance: ETANERCEPT-SZZS
     Indication: Rheumatoid arthritis

REACTIONS (9)
  - Spinal fracture [Unknown]
  - Fall [Unknown]
  - Peripheral swelling [Unknown]
  - Erythema [Unknown]
  - Lung disorder [Unknown]
  - Contusion [Unknown]
  - Pain in extremity [Unknown]
  - Osteoarthritis [Unknown]
  - Bronchitis [Unknown]

NARRATIVE: CASE EVENT DATE: 20220807
